FAERS Safety Report 15460106 (Version 1)
Quarter: 2018Q4

REPORT INFORMATION
  Report Type: Spontaneous
  Country: US (occurrence: US)
  Receive Date: 20181003
  Receipt Date: 20181003
  Transmission Date: 20190204
  Serious: No
  Sender: FDA-Public Use
  Company Number: US-SA-2018SA272892

PATIENT

DRUGS (3)
  1. NEOMYCIN. [Concomitant]
     Active Substance: NEOMYCIN
     Dosage: UNK UNK, UNK
     Route: 065
  2. PAZEO [Concomitant]
     Active Substance: OLOPATADINE HYDROCHLORIDE
  3. XYZAL ALLERGY 24HR [Suspect]
     Active Substance: LEVOCETIRIZINE DIHYDROCHLORIDE
     Dosage: UNK UNK, UNK
     Route: 065

REACTIONS (1)
  - Drug ineffective [Unknown]
